FAERS Safety Report 8585629 (Version 5)
Quarter: 2014Q2

REPORT INFORMATION
  Report Type: Spontaneous
  Country: US (occurrence: US)
  Receive Date: 20120530
  Receipt Date: 20140424
  Transmission Date: 20141212
  Serious: Yes (Death, Hospitalization)
  Sender: FDA-Public Use
  Company Number: US-GLAXOSMITHKLINE-A0942545A

PATIENT
  Age: 55 Year
  Sex: Female
  Weight: 81.6 kg

DRUGS (4)
  1. FLOLAN [Suspect]
     Indication: PULMONARY ARTERIAL HYPERTENSION
     Dosage: 40NGKM UNKNOWN
     Route: 042
     Dates: start: 19990927
  2. COUMADIN [Concomitant]
  3. VIAGRA [Concomitant]
  4. TRACLEER [Concomitant]

REACTIONS (3)
  - Death [Fatal]
  - Investigation [Not Recovered/Not Resolved]
  - Herpes zoster [Recovered/Resolved]
